FAERS Safety Report 5669001-X (Version None)
Quarter: 2008Q1

REPORT INFORMATION
  Report Type: 
  Country: None (occurrence: None)
  Receive Date: 20080317
  Receipt Date: 20080306
  Transmission Date: 20080703
  Serious: Yes (Hospitalization, Other)
  Sender: FDA-Public Use
  Company Number: US-NOVOPROD-272931

PATIENT
  Age: 23 Year
  Sex: Female

DRUGS (4)
  1. NOVOLOG [Suspect]
     Indication: TYPE 1 DIABETES MELLITUS
     Dosage: UNK, WITH MEALS
     Route: 058
  2. NOVOLOG [Suspect]
     Dosage: 1000 IU, UNK
     Route: 058
     Dates: start: 20080129, end: 20080129
  3. LANTUS [Suspect]
     Indication: TYPE 1 DIABETES MELLITUS
     Dosage: 46 IU, UNK
     Route: 058
     Dates: start: 20070701
  4. LANTUS [Suspect]
     Dosage: 2000 IU, UNK
     Route: 058
     Dates: start: 20080129, end: 20080129

REACTIONS (3)
  - BLOOD GLUCOSE DECREASED [None]
  - INTENTIONAL OVERDOSE [None]
  - SUICIDE ATTEMPT [None]
